FAERS Safety Report 7532266-3 (Version None)
Quarter: 2011Q2

REPORT INFORMATION
  Report Type: 
  Country: None (occurrence: None)
  Receive Date: 20110608
  Receipt Date: 20110603
  Transmission Date: 20111010
  Serious: Yes (Life-Threatening, Hospitalization)
  Sender: FDA-Public Use
  Company Number: GXKR2011DE01922

PATIENT
  Age: 72 Year
  Sex: Male
  Weight: 89.8 kg

DRUGS (9)
  1. OXYGESIC [Concomitant]
     Indication: PAIN
     Dosage: 10 MG, BID
     Route: 048
     Dates: start: 20101006, end: 20101012
  2. IBUPROFEN [Concomitant]
     Indication: PAIN
     Dosage: 800 MG, UNK
     Route: 048
     Dates: end: 20101003
  3. PANTOPRAZOLE [Concomitant]
     Indication: PROPHYLAXIS AGAINST GASTROINTESTINAL ULCER
     Dosage: 20 MG, QD
     Dates: start: 20101006, end: 20101012
  4. XARELTO [Interacting]
     Indication: THROMBOSIS PROPHYLAXIS
     Dosage: 10 MG, QD
     Route: 048
     Dates: start: 20101005, end: 20101011
  5. LISINOPRIL [Concomitant]
     Indication: HYPERTENSION
     Dosage: 10 MG, QD
     Route: 048
     Dates: start: 20070101
  6. ASPIRIN [Suspect]
     Indication: ARRHYTHMIA
     Dosage: 100 MG, QD
     Route: 048
     Dates: start: 20070101, end: 20101003
  7. ASPIRIN [Interacting]
     Dosage: 100 MG, QD
     Route: 048
     Dates: start: 20101012
  8. BISOPROLOL FUMARATE [Concomitant]
     Indication: ARRHYTHMIA
     Dosage: 2.5 MG, QD
     Route: 048
     Dates: start: 20070101
  9. VOLTAREN [Interacting]
     Indication: PAIN
     Dosage: 75 MG, BID
     Route: 048
     Dates: start: 20101006, end: 20101012

REACTIONS (6)
  - HAEMATOMA [None]
  - POST PROCEDURAL HAEMORRHAGE [None]
  - MYOCARDIAL ISCHAEMIA [None]
  - ELECTROCARDIOGRAM ST SEGMENT DEPRESSION [None]
  - ANAEMIA [None]
  - ANGINA PECTORIS [None]
